FAERS Safety Report 7122531-6 (Version None)
Quarter: 2010Q4

REPORT INFORMATION
  Report Type: 
  Country: None (occurrence: None)
  Receive Date: 20101124
  Receipt Date: 20101022
  Transmission Date: 20110411
  Serious: Yes (Other)
  Sender: FDA-Public Use
  Company Number: AR-AMGEN-ARGCT2010001105

PATIENT

DRUGS (7)
  1. ENBREL [Suspect]
     Indication: RHEUMATOID ARTHRITIS
     Dosage: 25 MG, 2 TIMES/WK
     Dates: start: 20081111, end: 20100201
  2. METHOTREXATE [Concomitant]
     Indication: RHEUMATOID ARTHRITIS
     Dosage: 7.5 MG TABLETS, FREQUENCY UNKNOWN
     Route: 048
  3. PREDNISONE [Concomitant]
     Indication: PAIN
     Dosage: 4 TO 12 MG DAILY
     Route: 048
  4. PREDNISONE [Concomitant]
     Indication: INFLAMMATION
  5. IRON [Concomitant]
  6. FOLIC ACID [Concomitant]
     Dosage: UNK
     Route: 048
  7. VITAMINS [Concomitant]

REACTIONS (1)
  - BREAST CANCER METASTATIC [None]
